FAERS Safety Report 8503047-9 (Version None)
Quarter: 2012Q3

REPORT INFORMATION
  Report Type: 
  Country: None (occurrence: None)
  Receive Date: 20120711
  Receipt Date: 20120628
  Transmission Date: 20120928
  Serious: Yes (Hospitalization)
  Sender: FDA-Public Use
  Company Number: BR-ELI_LILLY_AND_COMPANY-BR201204000138

PATIENT
  Sex: Female
  Weight: 51 kg

DRUGS (3)
  1. BUDESONIDA [Concomitant]
     Dosage: UNK, UNKNOWN
     Route: 065
  2. COLECALCIFEROL [Concomitant]
     Dosage: UNK, UNKNOWN
     Route: 065
     Dates: start: 20111201
  3. FORTEO [Suspect]
     Indication: OSTEOPOROSIS
     Dosage: 20 UG, QD
     Route: 058

REACTIONS (3)
  - LUNG DISORDER [None]
  - CARDIAC DISORDER [None]
  - PNEUMONIA [None]
